FAERS Safety Report 9149411 (Version 1)
Quarter: 2013Q1

REPORT INFORMATION
  Report Type: Spontaneous
  Country: US (occurrence: None)
  Receive Date: 20130228
  Receipt Date: 20130228
  Transmission Date: 20140127
  Serious: Yes (Life-Threatening, Hospitalization)
  Sender: FDA-Public Use
  Company Number: None

PATIENT
  Age: 83 Year
  Sex: Male
  Weight: 86 kg

DRUGS (1)
  1. WARFARIN [Suspect]
     Indication: ATRIAL FIBRILLATION
     Dosage: MG
     Route: 048

REACTIONS (6)
  - Asthenia [None]
  - Gastric haemorrhage [None]
  - Fatigue [None]
  - Dizziness [None]
  - International normalised ratio increased [None]
  - Upper gastrointestinal haemorrhage [None]
